FAERS Safety Report 15809282 (Version 3)
Quarter: 2019Q2

REPORT INFORMATION
  Report Type: Report from Study
  Country: CA (occurrence: CA)
  Receive Date: 20190110
  Receipt Date: 20190607
  Transmission Date: 20190711
  Serious: Yes (Other)
  Sender: FDA-Public Use
  Company Number: PHHY2018CA073549

PATIENT
  Sex: Female

DRUGS (10)
  1. COSENTYX [Suspect]
     Active Substance: SECUKINUMAB
     Dosage: 300 MG, QMO
     Route: 058
  2. COSENTYX [Suspect]
     Active Substance: SECUKINUMAB
     Indication: PSORIASIS
     Dosage: 300 MG, QW (SENSOREADY PEN)
     Route: 058
     Dates: start: 20180414
  3. COSENTYX [Suspect]
     Active Substance: SECUKINUMAB
     Dosage: 300 MG, QW (SENSOREADY PEN)
     Route: 058
     Dates: start: 20180421
  4. TALTZ [Concomitant]
     Active Substance: IXEKIZUMAB
     Indication: PRODUCT USED FOR UNKNOWN INDICATION
     Dosage: UNK
     Route: 065
     Dates: start: 201711
  5. METHOTREXATE. [Concomitant]
     Active Substance: METHOTREXATE
     Indication: PRODUCT USED FOR UNKNOWN INDICATION
     Dosage: UNK
     Route: 065
     Dates: start: 201612, end: 201712
  6. METHOTREXATE. [Concomitant]
     Active Substance: METHOTREXATE
     Dosage: 10 MG, QW
     Route: 065
     Dates: start: 201807
  7. COSENTYX [Suspect]
     Active Substance: SECUKINUMAB
     Dosage: 450 MG, QMO
     Route: 058
     Dates: start: 20190413
  8. COSENTYX [Suspect]
     Active Substance: SECUKINUMAB
     Dosage: 300 MG, QMO
     Route: 058
     Dates: start: 20180707
  9. COSENTYX [Suspect]
     Active Substance: SECUKINUMAB
     Dosage: 450 MG, QMO
     Route: 058
  10. CORTISONE [Concomitant]
     Active Substance: CORTISONE\HYDROCORTISONE
     Indication: PRODUCT USED FOR UNKNOWN INDICATION
     Route: 065

REACTIONS (21)
  - Injection site pain [Unknown]
  - Dental caries [Unknown]
  - Neuralgia [Unknown]
  - Drug ineffective [Unknown]
  - Injection site erythema [Unknown]
  - Pain [Unknown]
  - Acne [Unknown]
  - Injection site bruising [Unknown]
  - Sexual dysfunction [Unknown]
  - Nasopharyngitis [Unknown]
  - Injection site rash [Unknown]
  - Pneumonia [Not Recovered/Not Resolved]
  - Skin mass [Unknown]
  - Emotional distress [Unknown]
  - Pain of skin [Unknown]
  - Tooth fracture [Unknown]
  - Psoriasis [Unknown]
  - Skin plaque [Unknown]
  - Pruritus [Unknown]
  - Toothache [Unknown]
  - Inappropriate schedule of product administration [Unknown]
